FAERS Safety Report 5072067-1 (Version None)
Quarter: 2006Q3

REPORT INFORMATION
  Report Type: 
  Country: None (occurrence: None)
  Receive Date: 20060807
  Receipt Date: 20060728
  Transmission Date: 20061208
  Serious: Yes (Other)
  Sender: FDA-Public Use
  Company Number: PHBS2006BR11449

PATIENT
  Age: 70 Year
  Sex: Female
  Weight: 62 kg

DRUGS (3)
  1. TEGRETOL [Suspect]
     Dosage: 200 MG, BID
     Route: 048
  2. LEXOTAN [Concomitant]
     Dosage: 3 MG, BID
     Route: 048
  3. POLARAMINE [Concomitant]
     Route: 048

REACTIONS (2)
  - STROKE IN EVOLUTION [None]
  - SYNCOPE [None]
